FAERS Safety Report 9060563 (Version 1)
Quarter: 2013Q1

REPORT INFORMATION
  Report Type: Report from Study
  Country: US (occurrence: US)
  Receive Date: 20130212
  Receipt Date: 20130212
  Transmission Date: 20140127
  Serious: Yes (Other)
  Sender: FDA-Public Use
  Company Number: US-TEVA-377757USA

PATIENT
  Age: 16 None
  Sex: Male

DRUGS (3)
  1. CLARAVIS [Suspect]
     Dates: end: 201212
  2. CELEXA [Concomitant]
  3. PROZAC [Concomitant]

REACTIONS (3)
  - Homicidal ideation [Recovering/Resolving]
  - Anger [Recovering/Resolving]
  - Drug ineffective [Unknown]
